FAERS Safety Report 6000027-2 (Version None)
Quarter: 2008Q4

REPORT INFORMATION
  Report Type: 
  Country: None (occurrence: None)
  Receive Date: 20081215
  Receipt Date: 20081205
  Transmission Date: 20090506
  Serious: Yes (Hospitalization)
  Sender: FDA-Public Use
  Company Number: A0725153A

PATIENT
  Age: 64 Year
  Sex: Male
  Weight: 127.3 kg

DRUGS (4)
  1. AVANDIA [Suspect]
     Dosage: 4MG TWICE PER DAY
     Route: 065
     Dates: start: 19990101, end: 20060101
  2. REGULAR INSULIN [Concomitant]
     Dates: start: 19930101
  3. ULTRALENTE [Concomitant]
     Dates: start: 19930101
  4. DIABETA [Concomitant]
     Dates: start: 19980101

REACTIONS (3)
  - CARDIAC FAILURE CONGESTIVE [None]
  - HEART INJURY [None]
  - MYOCARDIAL INFARCTION [None]
